FAERS Safety Report 6832641-6 (Version None)
Quarter: 2010Q3

REPORT INFORMATION
  Report Type: 
  Country: None (occurrence: None)
  Receive Date: 20100712
  Receipt Date: 20070315
  Transmission Date: 20110219
  Serious: No
  Sender: FDA-Public Use
  Company Number: US-PFIZER INC-2007021615

PATIENT

DRUGS (2)
  1. CHANTIX [Suspect]
  2. PREVACID [Concomitant]

REACTIONS (1)
  - BRADYCARDIA [None]
